FAERS Safety Report 23502540 (Version 1)
Quarter: 2024Q1

REPORT INFORMATION
  Report Type: Spontaneous
  Country: US (occurrence: US)
  Receive Date: 20240208
  Receipt Date: 20240208
  Transmission Date: 20240410
  Serious: No
  Sender: FDA-Public Use
  Company Number: US-INTRA-CELLULAR THERAPIES, INC.-2023ICT00523

PATIENT
  Age: 23 Year
  Sex: Female
  Weight: 105.22 kg

DRUGS (3)
  1. CAPLYTA [Suspect]
     Active Substance: LUMATEPERONE
     Indication: Bipolar I disorder
     Dosage: 42 MG, 1X/DAY
     Route: 048
     Dates: start: 20230406, end: 20230411
  2. LEXAPRO [Concomitant]
     Active Substance: ESCITALOPRAM OXALATE
  3. DIAZEPAM [Concomitant]
     Active Substance: DIAZEPAM

REACTIONS (3)
  - Asthenia [Recovering/Resolving]
  - Epistaxis [Recovered/Resolved]
  - Dizziness [Recovered/Resolved]

NARRATIVE: CASE EVENT DATE: 20230407
